FAERS Safety Report 7339961-X (Version None)
Quarter: 2011Q1

REPORT INFORMATION
  Report Type: 
  Country: None (occurrence: None)
  Receive Date: 20110309
  Receipt Date: 20110215
  Transmission Date: 20110831
  Serious: No
  Sender: FDA-Public Use
  Company Number: US-PFIZER INC-2010155024

PATIENT
  Sex: Female

DRUGS (3)
  1. EFFEXOR XR [Suspect]
     Dosage: UNK
     Route: 048
  2. EFFEXOR XR [Suspect]
     Dosage: UNK
     Route: 048
  3. ENBREL [Suspect]
     Dosage: 50 MG, WEEKLY
     Route: 058

REACTIONS (2)
  - DIZZINESS [None]
  - NASOPHARYNGITIS [None]
